FAERS Safety Report 13377574 (Version 2)
Quarter: 2017Q2

REPORT INFORMATION
  Report Type: Spontaneous
  Country: US (occurrence: US)
  Receive Date: 20170328
  Receipt Date: 20170501
  Transmission Date: 20170830
  Serious: Yes (Other)
  Sender: FDA-Public Use
  Company Number: US-PFIZER INC-2017125547

PATIENT
  Age: 73 Year
  Sex: Male
  Weight: 81.83 kg

DRUGS (8)
  1. FENTANYL. [Concomitant]
     Active Substance: FENTANYL
  2. PROPOFOL. [Concomitant]
     Active Substance: PROPOFOL
  3. ZANTAC [Concomitant]
     Active Substance: RANITIDINE HYDROCHLORIDE
     Dosage: 150 MG, UNK
     Route: 048
  4. SANATOGEN [Concomitant]
     Dosage: 5 MG, UNK
     Route: 042
  5. ZOFRAN [Concomitant]
     Active Substance: ONDANSETRON HYDROCHLORIDE
     Dosage: 8 MG, UNK
     Route: 042
  6. SOLU-MEDROL [Concomitant]
     Active Substance: METHYLPREDNISOLONE SODIUM SUCCINATE
     Dosage: 100 MG, UNK
     Route: 042
  7. VANCOMYCIN HCL [Suspect]
     Active Substance: VANCOMYCIN HYDROCHLORIDE
     Indication: INFECTION PROPHYLAXIS
     Dosage: 1 G, SINGLE
     Route: 042
     Dates: start: 20170317
  8. VERSED [Concomitant]
     Active Substance: MIDAZOLAM HYDROCHLORIDE

REACTIONS (2)
  - Respiratory distress [Recovered/Resolved]
  - Bradycardia [Recovered/Resolved]

NARRATIVE: CASE EVENT DATE: 20170317
